FAERS Safety Report 5912152-2 (Version None)
Quarter: 2008Q4

REPORT INFORMATION
  Report Type: 
  Country: None (occurrence: None)
  Receive Date: 20081008
  Receipt Date: 20080923
  Transmission Date: 20090506
  Serious: Yes (Life-Threatening)
  Sender: FDA-Public Use
  Company Number: RU-GENENTECH-268950

PATIENT
  Sex: Male

DRUGS (7)
  1. TRASTUZUMAB [Suspect]
     Indication: GASTRIC CANCER
     Dosage: 504 MG, UNK
     Route: 042
     Dates: start: 20080919, end: 20080919
  2. CAPECITABINE [Suspect]
     Indication: GASTRIC CANCER
     Dosage: UNK
     Route: 048
  3. CISPLATIN [Suspect]
     Indication: GASTRIC CANCER
     Route: 042
  4. DEXAMETHASONE [Suspect]
     Indication: PREMEDICATION
     Dosage: 8 MG, UNK
  5. ONDANSETRON [Suspect]
     Indication: PREMEDICATION
     Dosage: 8 MG, UNK
  6. POTASSIUM CHLORIDE [Suspect]
     Indication: PREMEDICATION
     Dosage: 5 ML, UNK
  7. SODIUM CHLORIDE [Suspect]
     Indication: PREMEDICATION
     Dosage: 1000 ML, UNK

REACTIONS (1)
  - GASTROINTESTINAL HAEMORRHAGE [None]
